FAERS Safety Report 9175381 (Version 1)
Quarter: 2013Q1

REPORT INFORMATION
  Report Type: Spontaneous
  Country: AU (occurrence: AU)
  Receive Date: 20130320
  Receipt Date: 20130320
  Transmission Date: 20140127
  Serious: Yes (Death)
  Sender: FDA-Public Use
  Company Number: AU-ROCHE-1203520

PATIENT
  Sex: Female

DRUGS (5)
  1. HERCEPTIN [Suspect]
     Indication: BREAST CANCER METASTATIC
     Route: 065
  2. XELODA [Suspect]
     Indication: BREAST CANCER METASTATIC
     Route: 065
  3. TAXOTERE [Concomitant]
     Indication: BREAST CANCER METASTATIC
  4. VINORELBINE [Concomitant]
     Indication: BREAST CANCER METASTATIC
  5. LAPATINIB [Concomitant]
     Indication: BREAST CANCER METASTATIC

REACTIONS (1)
  - Disease progression [Fatal]
